FAERS Safety Report 8489324-9 (Version None)
Quarter: 2012Q3

REPORT INFORMATION
  Report Type: 
  Country: None (occurrence: None)
  Receive Date: 20120705
  Receipt Date: 20120627
  Transmission Date: 20120928
  Serious: Yes (Death, Life-Threatening, Hospitalization, Other)
  Sender: FDA-Public Use
  Company Number: EG-ROCHE-1052915

PATIENT
  Sex: Female
  Weight: 75 kg

DRUGS (7)
  1. MABTHERA [Suspect]
     Dosage: CYCLE 2-6
     Route: 042
     Dates: end: 20120329
  2. CIPROFLOXACIN HYDROCHLORIDE [Concomitant]
     Dates: start: 20120321, end: 20120323
  3. FLUCONAZOLE [Concomitant]
     Dates: start: 20120321, end: 20120323
  4. MABTHERA [Suspect]
     Indication: LYMPHOCYTIC LEUKAEMIA
     Dosage: LAST DOSE PRIOR TO EVENT: 11/MAR/2012, CYCLE 1
     Route: 042
     Dates: start: 20120212
  5. INSULIN NORDISK MIXTARD (PORK) [Concomitant]
     Dosage: 70 UNIT
     Dates: start: 19970615
  6. AUGMENTIN '125' [Concomitant]
     Dates: start: 20120321, end: 20120323
  7. CHLORAMBUCIL [Suspect]
     Indication: LYMPHOCYTIC LEUKAEMIA
     Dosage: LAST DOSE PRIOR TO THE EVENT:11/MAR/2012
     Route: 048
     Dates: start: 20120212, end: 20120325

REACTIONS (3)
  - DEPRESSED LEVEL OF CONSCIOUSNESS [None]
  - SUPRAVENTRICULAR TACHYCARDIA [None]
  - CARDIAC ARREST [None]
